FAERS Safety Report 22540567 (Version 1)
Quarter: 2023Q2

REPORT INFORMATION
  Report Type: Spontaneous
  Country: ES (occurrence: None)
  Receive Date: 20230609
  Receipt Date: 20230609
  Transmission Date: 20230721
  Serious: Yes (Life-Threatening)
  Sender: FDA-Public Use
  Company Number: 2023A132666

PATIENT
  Age: 38 Year
  Sex: Male

DRUGS (6)
  1. OMEPRAZOLE [Interacting]
     Active Substance: OMEPRAZOLE
     Indication: Prophylaxis
     Route: 048
     Dates: start: 20230422, end: 20230424
  2. ISAVUCONAZOLE [Interacting]
     Active Substance: ISAVUCONAZOLE
     Indication: Fungal infection
     Route: 042
     Dates: start: 20230420, end: 20230422
  3. TACROLIMUS [Interacting]
     Active Substance: TACROLIMUS
     Indication: Immunosuppression
     Route: 042
     Dates: start: 20230315, end: 20230420
  4. ACYCLOVIR [Interacting]
     Active Substance: ACYCLOVIR
     Indication: Herpes virus infection
     Route: 042
     Dates: start: 20230419, end: 20230423
  5. AZITHROMYCIN DIHYDRATE [Interacting]
     Active Substance: AZITHROMYCIN DIHYDRATE
     Indication: Bacterial infection
     Route: 048
     Dates: start: 20230418, end: 20230423
  6. LEVOFLOXACIN [Concomitant]
     Active Substance: LEVOFLOXACIN
     Indication: Bacterial infection
     Route: 048
     Dates: start: 20230421, end: 20230425

REACTIONS (3)
  - Chronic kidney disease [Recovered/Resolved]
  - Encephalopathy [Recovered/Resolved]
  - Myoclonic dystonia [Recovered/Resolved]

NARRATIVE: CASE EVENT DATE: 20230423
